FAERS Safety Report 9540256 (Version 2)
Quarter: 2013Q4

REPORT INFORMATION
  Report Type: Report from Study
  Country: US (occurrence: US)
  Receive Date: 20130920
  Receipt Date: 20131015
  Transmission Date: 20140711
  Serious: Yes (Death, Other)
  Sender: FDA-Public Use
  Company Number: US-PURDUE-USA-2013-0106553

PATIENT
  Age: 49 Year
  Sex: Male
  Weight: 52.15 kg

DRUGS (1)
  1. OXYCONTIN (NDA 22-272) [Suspect]
     Indication: CANCER PAIN
     Dosage: 60 MG, BID
     Route: 048
     Dates: start: 20130312, end: 20130822

REACTIONS (3)
  - Malignant neoplasm progression [Fatal]
  - Wheelchair user [Unknown]
  - Pain [Unknown]
